FAERS Safety Report 5874596-7 (Version None)
Quarter: 2008Q3

REPORT INFORMATION
  Report Type: 
  Country: None (occurrence: None)
  Receive Date: 20080905
  Receipt Date: 20080905
  Transmission Date: 20090109
  Serious: Yes (Hospitalization)
  Sender: FDA-Public Use
  Company Number: None

PATIENT
  Sex: Male
  Weight: 114.3 kg

DRUGS (11)
  1. CASODEX [Suspect]
     Dosage: 50 MG
  2. ZOLADEX [Suspect]
     Dosage: 10.8 MG
  3. ATENOLOL [Concomitant]
  4. CITALOPRAM HYDROBROMIDE [Concomitant]
  5. DILTIAZEM HCL [Concomitant]
  6. DOCUSATE NA/SENNOSIDES [Concomitant]
  7. LISINOPRIL [Concomitant]
  8. POTASSIUM CHLORIDE [Concomitant]
  9. SIMVASTATIN [Concomitant]
  10. TERAZOSIN [Concomitant]
  11. ZOLPIDEM [Concomitant]

REACTIONS (5)
  - HYPERHIDROSIS [None]
  - HYPERTENSION [None]
  - PULMONARY OEDEMA [None]
  - RESPIRATORY DISTRESS [None]
  - TACHYCARDIA [None]
